APPROVED DRUG PRODUCT: QUININE SULFATE
Active Ingredient: QUININE SULFATE
Strength: 324MG
Dosage Form/Route: CAPSULE;ORAL
Application: A202581 | Product #001
Applicant: AUROBINDO PHARMA USA INC
Approved: Dec 14, 2012 | RLD: No | RS: No | Type: DISCN